FAERS Safety Report 4713617-1 (Version None)
Quarter: 2005Q3

REPORT INFORMATION
  Report Type: 
  Country: None (occurrence: None)
  Receive Date: 20050712
  Receipt Date: 20050627
  Transmission Date: 20060218
  Serious: Yes (Hospitalization)
  Sender: FDA-Public Use
  Company Number: GBS050617686

PATIENT
  Age: 73 Year
  Sex: Male

DRUGS (12)
  1. CIALIS [Suspect]
     Indication: ERECTILE DYSFUNCTION
     Dosage: 20 MG
     Dates: start: 20050201
  2. EPOGEN [Concomitant]
  3. WARFARIN SODIUM [Concomitant]
  4. VITAMIN B COMPLEX CAP [Concomitant]
  5. FERROUS FUMARATE [Concomitant]
  6. AMLODIPIONE [Concomitant]
  7. CALCITRIOL [Concomitant]
  8. SEVELAMER [Concomitant]
  9. CALCICHEW (CALCIUM CARBONATE) [Concomitant]
  10. ASCORBIC ACID [Concomitant]
  11. DIGOXIN [Concomitant]
  12. HEPARIN [Concomitant]

REACTIONS (3)
  - DIARRHOEA [None]
  - GASTROINTESTINAL DISORDER [None]
  - TOOTH EXTRACTION [None]
